FAERS Safety Report 17558287 (Version 1)
Quarter: 2020Q1

REPORT INFORMATION
  Report Type: Spontaneous
  Country: US (occurrence: US)
  Receive Date: 20200318
  Receipt Date: 20200318
  Transmission Date: 20200409
  Serious: No
  Sender: FDA-Public Use
  Company Number: US-GE HEALTHCARE LIFE SCIENCES-2020CSU000820

PATIENT
  Age: 35 Year
  Sex: Female
  Weight: 65.31 kg

DRUGS (4)
  1. VISIPAQUE [Suspect]
     Active Substance: IODIXANOL
     Indication: ABDOMINAL PAIN UPPER
  2. MELATONIN [Concomitant]
     Active Substance: MELATONIN
     Dosage: 2.5 MG
     Route: 048
  3. VISIPAQUE [Suspect]
     Active Substance: IODIXANOL
     Indication: COMPUTERISED TOMOGRAM INTESTINE
     Dosage: 100 ML, UNK
     Route: 042
     Dates: start: 20200217, end: 20200217
  4. ETONOGESTREL/ETHINYLESTRADIOL MYLAN [Concomitant]
     Dosage: 0.12-0.015MG/24HR
     Route: 067

REACTIONS (1)
  - Urticaria [Unknown]

NARRATIVE: CASE EVENT DATE: 20200217
